FAERS Safety Report 7010965-X (Version None)
Quarter: 2010Q3

REPORT INFORMATION
  Report Type: 
  Country: None (occurrence: None)
  Receive Date: 20100923
  Receipt Date: 20090601
  Transmission Date: 20110219
  Serious: No
  Sender: FDA-Public Use
  Company Number: HQWYE821620MAY05

PATIENT
  Sex: Female
  Weight: 128.03 kg

DRUGS (11)
  1. EFFEXOR XR [Suspect]
     Indication: DEPRESSION
     Dosage: 225 MG DAILY IN OCT-MAR AND 150 MG DAILY IN APR-SEPT
     Route: 048
     Dates: start: 19980101, end: 20050331
  2. EFFEXOR XR [Suspect]
     Route: 048
     Dates: start: 20050401, end: 20050507
  3. EFFEXOR XR [Suspect]
     Route: 048
     Dates: start: 20050508, end: 20050508
  4. EFFEXOR XR [Suspect]
     Dosage: RESTARTED AT AN UNKNOWN DOSE
     Route: 048
  5. EFFEXOR XR [Suspect]
     Route: 048
     Dates: start: 20070101, end: 20090501
  6. EFFEXOR XR [Suspect]
     Route: 048
     Dates: start: 20090501, end: 20090501
  7. EFFEXOR XR [Suspect]
     Route: 048
     Dates: start: 20090501, end: 20090501
  8. EFFEXOR XR [Suspect]
     Dosage: ^SEPARATING THE CAPSULES AND TAKING A PARTIAL DOSE^
     Route: 048
     Dates: start: 20090501, end: 20090521
  9. HYDROCHLOROTHIAZIDE [Concomitant]
     Indication: HYPERTENSION
     Dosage: ^10 MG^, TAKEN DAILY
     Route: 065
  10. SYNTHROID [Concomitant]
     Indication: THYROID DISORDER
     Route: 065
  11. LISINOPRIL [Concomitant]
     Indication: HYPERTENSION
     Route: 065

REACTIONS (5)
  - CHILLS [None]
  - DRUG WITHDRAWAL SYNDROME [None]
  - HEARING IMPAIRED [None]
  - NAUSEA [None]
  - PARAESTHESIA [None]
